FAERS Safety Report 11686047 (Version 1)
Quarter: 2015Q4

REPORT INFORMATION
  Report Type: Report from Study
  Country: FR (occurrence: FR)
  Receive Date: 20151030
  Receipt Date: 20151030
  Transmission Date: 20160304
  Serious: Yes (Other)
  Sender: FDA-Public Use
  Company Number: FR-ROCHE-1599245

PATIENT

DRUGS (6)
  1. RIBAVIRIN. [Suspect]
     Active Substance: RIBAVIRIN
     Indication: HEPATITIS C
     Route: 065
  2. CYCLOSPORINE. [Suspect]
     Active Substance: CYCLOSPORINE
     Indication: HEPATITIS C
     Route: 065
  3. PEG-INTERFERON ALFA 2A [Suspect]
     Active Substance: PEGINTERFERON ALFA-2A
     Indication: HEPATITIS C
     Route: 065
  4. DACLATASVIR. [Suspect]
     Active Substance: DACLATASVIR
     Indication: HEPATITIS C
     Route: 065
  5. SOFOSBUVIR [Suspect]
     Active Substance: SOFOSBUVIR
     Indication: HEPATITIS C
     Route: 065
  6. TACROLIMUS. [Suspect]
     Active Substance: TACROLIMUS
     Indication: HEPATITIS C
     Route: 065

REACTIONS (14)
  - Fungal infection [Unknown]
  - Asthenia [Unknown]
  - Urinary tract infection [Unknown]
  - Cytomegalovirus infection [Unknown]
  - Peritonitis bacterial [Unknown]
  - Infection [Unknown]
  - Anaemia [Unknown]
  - Renal failure [Unknown]
  - Ascites [Unknown]
  - Neutropenia [Unknown]
  - Sepsis [Unknown]
  - Hepatic encephalopathy [Unknown]
  - Malnutrition [Unknown]
  - Thrombocytopenia [Unknown]
